FAERS Safety Report 9998168 (Version 1)
Quarter: 2014Q1

REPORT INFORMATION
  Report Type: Spontaneous
  Country: CN (occurrence: CN)
  Receive Date: 20140311
  Receipt Date: 20140311
  Transmission Date: 20141002
  Serious: Yes (Death, Hospitalization)
  Sender: FDA-Public Use
  Company Number: PHHY2014CN026960

PATIENT
  Sex: Male
  Weight: .72 kg

DRUGS (1)
  1. PREDNISONE [Suspect]
     Route: 064

REACTIONS (8)
  - Listeriosis [Fatal]
  - Premature baby [Unknown]
  - Low birth weight baby [Unknown]
  - Pulmonary haemorrhage [Unknown]
  - Neonatal respiratory distress syndrome [Unknown]
  - Neonatal asphyxia [Unknown]
  - Sclerema [Unknown]
  - Foetal exposure during pregnancy [Unknown]
